FAERS Safety Report 23251594 (Version 2)
Quarter: 2023Q4

REPORT INFORMATION
  Report Type: Other
  Country: US (occurrence: None)
  Receive Date: 20231201
  Receipt Date: 20231212
  Transmission Date: 20240110
  Serious: Yes (Death)
  Sender: FDA-Public Use
  Company Number: US-ROCHE-3467143

PATIENT
  Age: 86 Year
  Sex: Male
  Weight: 78.542 kg

DRUGS (8)
  1. ESBRIET [Suspect]
     Active Substance: PIRFENIDONE
     Indication: Idiopathic pulmonary fibrosis
     Dosage: TAKE 3 CAPSULE(S) BY MOUTH 3 TIMES A DAY
     Route: 048
     Dates: start: 20200309
  2. FLUTICASONE PROPIONATE [Concomitant]
     Active Substance: FLUTICASONE PROPIONATE
     Dosage: (50MCG/ACT SUSPENSION, 2 (TWO) NASAL PUFFS EACH NOSTRIL DAILY,
     Route: 045
     Dates: start: 20190909
  3. FLOMAX CAPSULE [Concomitant]
     Dosage: CAPSULE ER, ORAL) ACTIVE
     Route: 048
  4. SIMVASTATIN [Concomitant]
     Active Substance: SIMVASTATIN
     Dosage: RIVE.
     Route: 048
  5. ASPIRIN [Concomitant]
     Active Substance: ASPIRIN
     Dosage: ACTIVE.
  6. VITAMIN C [Concomitant]
     Active Substance: ASCORBIC ACID
     Dosage: ACTIVE.
     Route: 048
  7. AMOXICILLIN [Concomitant]
     Active Substance: AMOXICILLIN
     Dosage: ACTIVE.
     Route: 048
  8. QVAR REDIHALER [Concomitant]
     Active Substance: BECLOMETHASONE DIPROPIONATE
     Dosage: INHALATION TWICE DAILY, -TAKEN STARTING (06/10/2020) ACTIVE- HX ENTRY.
     Dates: start: 20200610

REACTIONS (4)
  - Death [Fatal]
  - Cough [Unknown]
  - Dyspnoea exertional [Unknown]
  - Dyspnoea [Unknown]
